FAERS Safety Report 6716024-5 (Version None)
Quarter: 2010Q2

REPORT INFORMATION
  Report Type: 
  Country: None (occurrence: None)
  Receive Date: 20100507
  Receipt Date: 20100426
  Transmission Date: 20101027
  Serious: Yes (Other)
  Sender: FDA-Public Use
  Company Number: ES-JNJFOC-20100407818

PATIENT
  Age: 48 Year
  Sex: Male

DRUGS (7)
  1. REMICADE [Suspect]
     Indication: PSORIATIC ARTHROPATHY
     Route: 042
  2. REMICADE [Suspect]
     Route: 042
  3. REMICADE [Suspect]
     Route: 042
  4. REMICADE [Suspect]
     Indication: PSORIASIS
     Route: 042
  5. REMICADE [Suspect]
     Route: 042
  6. REMICADE [Suspect]
     Route: 042
  7. LEFLUNOMIDE [Suspect]
     Indication: PSORIATIC ARTHROPATHY

REACTIONS (5)
  - ANAEMIA OF CHRONIC DISEASE [None]
  - ANTINUCLEAR ANTIBODY POSITIVE [None]
  - HEPATIC ENZYME INCREASED [None]
  - PSORIATIC ARTHROPATHY [None]
  - TUBERCULOSIS [None]
